FAERS Safety Report 8964071 (Version 3)
Quarter: 2013Q2

REPORT INFORMATION
  Report Type: Spontaneous
  Country: US (occurrence: US)
  Receive Date: 20121213
  Receipt Date: 20130522
  Transmission Date: 20140414
  Serious: Yes (Hospitalization)
  Sender: FDA-Public Use
  Company Number: US-GLAXOSMITHKLINE-A1004384A

PATIENT
  Sex: Male

DRUGS (3)
  1. ADVAIR [Suspect]
     Indication: EMPHYSEMA
     Dosage: 1PUFF TWICE PER DAY
     Route: 055
     Dates: end: 2010
  2. ADVAIR [Suspect]
     Indication: EMPHYSEMA
     Route: 055
  3. SPIRIVA [Concomitant]

REACTIONS (10)
  - Pneumonia [Recovered/Resolved]
  - Total lung capacity decreased [Recovered/Resolved]
  - Foreign body [Unknown]
  - Product quality issue [Unknown]
  - Aphonia [Unknown]
  - Laryngitis [Unknown]
  - Osteoporosis [Unknown]
  - Glaucoma [Unknown]
  - Body height decreased [Unknown]
  - Drug ineffective [Unknown]
